FAERS Safety Report 5255027-7 (Version None)
Quarter: 2007Q1

REPORT INFORMATION
  Report Type: 
  Country: None (occurrence: None)
  Receive Date: 20070305
  Receipt Date: 20070221
  Transmission Date: 20070707
  Serious: Yes (Life-Threatening, Other)
  Sender: FDA-Public Use
  Company Number: HQWYE380222FEB07

PATIENT
  Age: 62 Year
  Sex: Male

DRUGS (15)
  1. CORDARONE [Suspect]
     Indication: ATRIAL FIBRILLATION
     Dosage: 200 MG/FREQUENCY NOT PROVIDED
     Route: 048
     Dates: end: 20061031
  2. CORDARONE [Suspect]
     Indication: ARRHYTHMIA
  3. CELLCEPT [Suspect]
     Dosage: NOT PROVIDED
     Route: 065
     Dates: end: 20061031
  4. CYMEVAN [Suspect]
     Dosage: 140 MG/FREQUENCY NOT PROVIDED
     Route: 048
     Dates: start: 20061027, end: 20061108
  5. ZEFFIX [Concomitant]
     Indication: HEPATITIS B
     Dosage: NOT PROVIDED
     Route: 065
     Dates: start: 20050101
  6. PROGRAF [Concomitant]
     Dosage: 5 MG/FREQUENCY NOT PROVIDED
     Route: 065
  7. ADEFOVIR DIPIVOXIL [Concomitant]
     Indication: HEPATITIS B
     Dosage: 1 UNIT FREQUENCY NOT PROVIDED
     Route: 065
     Dates: start: 20050101
  8. NEXIUM [Concomitant]
     Route: 065
  9. PRAVASTATIN [Concomitant]
     Dosage: 20 MG/FREQUENCY NOT PROVIDED
     Route: 065
  10. ASPEGIC 1000 [Concomitant]
     Dosage: 100 MG/FREQUENCY NOT PROVIDED
     Route: 065
  11. FORTUM [Concomitant]
     Route: 065
  12. CALCIPARINE [Concomitant]
     Route: 065
  13. NOVOMIX [Concomitant]
     Dosage: NOT PROVIDED
     Route: 065
  14. SECTRAL [Suspect]
     Dosage: 200MG/FREQUENCY NOT PROVIDED
     Route: 048
     Dates: end: 20061031
  15. CORTANCYL [Concomitant]
     Dosage: 5 MG/FREQUENCY NOT PROVIDED
     Route: 065

REACTIONS (4)
  - BLOOD CULTURE POSITIVE [None]
  - INTERSTITIAL LUNG DISEASE [None]
  - PNEUMONIA CYTOMEGALOVIRAL [None]
  - PSEUDOMONAS INFECTION [None]
